FAERS Safety Report 15277085 (Version 1)
Quarter: 2018Q3

REPORT INFORMATION
  Report Type: Spontaneous
  Country: GB (occurrence: GB)
  Receive Date: 20180814
  Receipt Date: 20180814
  Transmission Date: 20181010
  Serious: Yes (Hospitalization)
  Sender: FDA-Public Use
  Company Number: GB-009507513-2008-173816-NL

PATIENT
  Sex: Female

DRUGS (1)
  1. IMPLANON [Suspect]
     Active Substance: ETONOGESTREL
     Dosage: 1 DF, UNK
     Route: 065
     Dates: start: 20071012, end: 20080303

REACTIONS (3)
  - Menorrhagia [Unknown]
  - Pregnancy with implant contraceptive [Unknown]
  - Syncope [Unknown]

NARRATIVE: CASE EVENT DATE: 200801
